FAERS Safety Report 9381653 (Version 4)
Quarter: 2013Q4

REPORT INFORMATION
  Report Type: Spontaneous
  Country: JP (occurrence: JP)
  Receive Date: 20130703
  Receipt Date: 20131001
  Transmission Date: 20140711
  Serious: Yes (Hospitalization)
  Sender: FDA-Public Use
  Company Number: JP-TEVA-415335ISR

PATIENT
  Age: 70 Year
  Sex: Male
  Weight: 48 kg

DRUGS (2)
  1. ETOPOSIDE,INJ,100MG5ML1VIAL [Suspect]
     Indication: SMALL CELL LUNG CANCER
     Dosage: 110 MILLIGRAM DAILY;
     Route: 041
     Dates: start: 20130612, end: 20130613
  2. ETOPOSIDE,INJ,100MG5ML1VIAL [Suspect]
     Dosage: 125 MILLIGRAM DAILY;
     Route: 041
     Dates: start: 20130507, end: 20130509

REACTIONS (1)
  - Atrial fibrillation [Recovered/Resolved]
